FAERS Safety Report 24633188 (Version 1)
Quarter: 2024Q4

REPORT INFORMATION
  Report Type: Spontaneous
  Country: US (occurrence: US)
  Receive Date: 20241118
  Receipt Date: 20241118
  Transmission Date: 20250114
  Serious: No
  Sender: SANOFI AVENTIS
  Company Number: US-SA-2024SA322337

PATIENT
  Sex: Male

DRUGS (1)
  1. LANTUS SOLOSTAR [Suspect]
     Active Substance: INSULIN GLARGINE
     Dosage: 60 U, BID

REACTIONS (6)
  - Illness [Unknown]
  - Sinus disorder [Unknown]
  - Anxiety [Unknown]
  - Blood glucose increased [Unknown]
  - Off label use [Unknown]
  - Intentional product misuse [Unknown]
